FAERS Safety Report 8432734-6 (Version None)
Quarter: 2012Q2

REPORT INFORMATION
  Report Type: 
  Country: None (occurrence: None)
  Receive Date: 20120606
  Receipt Date: 20120522
  Transmission Date: 20120825
  Serious: Yes (Other)
  Sender: FDA-Public Use
  Company Number: FK201201431

PATIENT
  Age: 48 Year
  Sex: Female
  Weight: 73 kg

DRUGS (4)
  1. EPIRUBICIN [Suspect]
     Indication: BREAST CANCER
     Dosage: 190 MG, INTRAVENOUS (NOT OTHERWISE SPECIFIED)
     Route: 042
     Dates: start: 20120426, end: 20120426
  2. DEXAMETHASONE [Concomitant]
  3. METOCLOPRAMIDE [Concomitant]
  4. GRANISETRON [Concomitant]

REACTIONS (8)
  - HYPERSENSITIVITY [None]
  - FLUSHING [None]
  - ANAPHYLACTIC REACTION [None]
  - OEDEMA MOUTH [None]
  - RASH GENERALISED [None]
  - URTICARIA [None]
  - SWELLING FACE [None]
  - FEELING HOT [None]
